FAERS Safety Report 9917550 (Version 3)
Quarter: 2014Q1

REPORT INFORMATION
  Report Type: Spontaneous
  Country: JP (occurrence: JP)
  Receive Date: 20140221
  Receipt Date: 20140318
  Transmission Date: 20141002
  Serious: Yes (Hospitalization)
  Sender: FDA-Public Use
  Company Number: JP-B.I. PHARMACEUTICALS,INC./RIDGEFIELD-2014-BI-07903NB

PATIENT
  Age: 70 Year
  Sex: Male

DRUGS (5)
  1. TRAZENTA [Suspect]
     Indication: DIABETES MELLITUS
     Dosage: 5 MG
     Route: 048
     Dates: start: 20140109, end: 20140218
  2. ARTIST [Suspect]
     Indication: CARDIAC FAILURE CHRONIC
     Dosage: 5 MG
     Route: 048
     Dates: start: 20130224, end: 20140213
  3. PLAVIX [Suspect]
     Indication: PRODUCT USED FOR UNKNOWN INDICATION
     Route: 048
  4. WARFARIN / WARFARIN POTASSIUM [Concomitant]
     Dosage: 0.5 MG
     Route: 048
     Dates: start: 20131201, end: 20140218
  5. METGLUCO/ METFORMIN HYDROCHLORIDE [Concomitant]
     Indication: PRODUCT USED FOR UNKNOWN INDICATION
     Dosage: 0.5 MG
     Route: 048
     Dates: start: 20131201, end: 20140218

REACTIONS (2)
  - Interstitial lung disease [Not Recovered/Not Resolved]
  - Myocardial infarction [Unknown]
